FAERS Safety Report 12818626 (Version 4)
Quarter: 2017Q1

REPORT INFORMATION
  Report Type: Spontaneous
  Country: US (occurrence: US)
  Receive Date: 20161006
  Receipt Date: 20170223
  Transmission Date: 20170428
  Serious: No
  Sender: FDA-Public Use
  Company Number: US-LUNDBECK-DKLU2020070

PATIENT
  Age: 67 Year
  Sex: Male

DRUGS (5)
  1. NORTHERA [Suspect]
     Active Substance: DROXIDOPA
     Dosage: SCHEDULE C TITRATION COMPLETE
     Route: 065
     Dates: start: 20160922
  2. NORTHERA [Suspect]
     Active Substance: DROXIDOPA
     Route: 065
  3. NORTHERA [Suspect]
     Active Substance: DROXIDOPA
     Indication: ORTHOSTATIC HYPOTENSION
     Dosage: TITRATION SCHEDULE C (TITRATING)
     Route: 065
     Dates: start: 20160907
  4. NORTHERA [Suspect]
     Active Substance: DROXIDOPA
     Route: 065
     Dates: start: 20160908
  5. NORTHERA [Suspect]
     Active Substance: DROXIDOPA
     Dosage: SCHEDULE C TITRATION COMPLETE
     Route: 065

REACTIONS (7)
  - Dyspnoea [Unknown]
  - Asthenia [Not Recovered/Not Resolved]
  - Palpitations [Unknown]
  - Condition aggravated [Not Recovered/Not Resolved]
  - Dysstasia [Not Recovered/Not Resolved]
  - Drug ineffective [Unknown]
  - Blood pressure decreased [Not Recovered/Not Resolved]

NARRATIVE: CASE EVENT DATE: 20160921
